FAERS Safety Report 5766320-3 (Version None)
Quarter: 2008Q2

REPORT INFORMATION
  Report Type: 
  Country: None (occurrence: None)
  Receive Date: 20080611
  Receipt Date: 20080527
  Transmission Date: 20081010
  Serious: Yes (Death, Hospitalization)
  Sender: FDA-Public Use
  Company Number: FR-GENENTECH-262125

PATIENT
  Sex: Female

DRUGS (16)
  1. AVASTIN [Suspect]
     Indication: DRUG USE FOR UNKNOWN INDICATION
     Dosage: 7.5 MG/KG, Q3W
     Route: 042
     Dates: start: 20071029
  2. KENZEN [Suspect]
     Indication: DRUG USE FOR UNKNOWN INDICATION
     Dosage: 4 MG, QD
  3. TAXOL [Suspect]
     Indication: DRUG USE FOR UNKNOWN INDICATION
     Dosage: 80 MG/M2, UNK
     Route: 042
     Dates: start: 20070321
  4. GEMZAR [Suspect]
     Indication: DRUG USE FOR UNKNOWN INDICATION
     Dates: start: 20050126
  5. ZOPHREN [Concomitant]
     Indication: DRUG USE FOR UNKNOWN INDICATION
  6. METHYLPREDNISOLONE [Concomitant]
     Indication: DRUG USE FOR UNKNOWN INDICATION
  7. POLARAMINE [Concomitant]
     Indication: DRUG USE FOR UNKNOWN INDICATION
  8. RANITIDINE [Concomitant]
     Indication: DRUG USE FOR UNKNOWN INDICATION
  9. PANTOPRAZOLE SODIUM [Concomitant]
     Indication: DRUG USE FOR UNKNOWN INDICATION
  10. PROZAC [Concomitant]
     Indication: DRUG USE FOR UNKNOWN INDICATION
  11. LEXOMIL [Concomitant]
     Indication: DRUG USE FOR UNKNOWN INDICATION
  12. CORTANCYL [Concomitant]
     Indication: DRUG USE FOR UNKNOWN INDICATION
  13. WELLVONE [Concomitant]
     Indication: DRUG USE FOR UNKNOWN INDICATION
  14. INNOHEP [Concomitant]
     Indication: DRUG USE FOR UNKNOWN INDICATION
  15. NEORECORMON [Concomitant]
     Indication: DRUG USE FOR UNKNOWN INDICATION
  16. AUGMENTIN '125' [Concomitant]
     Indication: DRUG USE FOR UNKNOWN INDICATION

REACTIONS (1)
  - CAPILLARY LEAK SYNDROME [None]
